FAERS Safety Report 8072877-2 (Version None)
Quarter: 2012Q1

REPORT INFORMATION
  Report Type: 
  Country: None (occurrence: None)
  Receive Date: 20120126
  Receipt Date: 20120119
  Transmission Date: 20120608
  Serious: Yes (Other)
  Sender: FDA-Public Use
  Company Number: US-BAYER-2011-118223

PATIENT
  Age: 27 Year
  Sex: Female

DRUGS (3)
  1. IBUPROFEN [Concomitant]
  2. YASMIN [Suspect]
     Dosage: UNK
     Route: 048
     Dates: start: 20080101, end: 20100109
  3. YAZ [Suspect]
     Dosage: UNK
     Route: 048
     Dates: start: 20080101, end: 20100109

REACTIONS (3)
  - THROMBOSIS [None]
  - INJURY [None]
  - DEEP VEIN THROMBOSIS [None]
